FAERS Safety Report 9914247 (Version 1)
Quarter: 2014Q1

REPORT INFORMATION
  Report Type: Spontaneous
  Country: US (occurrence: None)
  Receive Date: 20140218
  Receipt Date: 20140218
  Transmission Date: 20141002
  Serious: Yes (Other)
  Sender: FDA-Public Use
  Company Number: 2014AP001123

PATIENT
  Sex: 0

DRUGS (1)
  1. FLUCONAZOLE [Suspect]

REACTIONS (2)
  - Hepatic cirrhosis [None]
  - Condition aggravated [None]
